FAERS Safety Report 7756544-8 (Version None)
Quarter: 2011Q3

REPORT INFORMATION
  Report Type: 
  Country: None (occurrence: None)
  Receive Date: 20110916
  Receipt Date: 20110913
  Transmission Date: 20111222
  Serious: Yes (Other)
  Sender: FDA-Public Use
  Company Number: US-ROXANE LABORATORIES, INC.-2011-RO-01261RO

PATIENT
  Age: 68 Year
  Sex: Male

DRUGS (2)
  1. CYCLOPHOSPHAMIDE [Suspect]
     Indication: SYMPATHETIC OPHTHALMIA
     Dosage: 50 MG
  2. PREDNISONE [Suspect]
     Indication: SYMPATHETIC OPHTHALMIA

REACTIONS (1)
  - B-CELL LYMPHOMA [None]
